FAERS Safety Report 9915690 (Version 1)
Quarter: 2014Q1

REPORT INFORMATION
  Report Type: Spontaneous
  Country: US (occurrence: None)
  Receive Date: 20140219
  Receipt Date: 20140219
  Transmission Date: 20141002
  Serious: Yes (Disabling)
  Sender: FDA-Public Use
  Company Number: None

PATIENT
  Sex: Female
  Weight: 127.46 kg

DRUGS (4)
  1. ABILIFY [Suspect]
     Indication: PSYCHOTIC DISORDER
     Dosage: 1-5MG TABLE EVERYDAY?90 (2REFILLS)?1TAB. EVERY DAY?BY MOUTH
     Route: 048
     Dates: start: 2003
  2. ABILIFY [Suspect]
     Indication: SCHIZOAFFECTIVE DISORDER
     Dosage: 1-5MG TABLE EVERYDAY?90 (2REFILLS)?1TAB. EVERY DAY?BY MOUTH
     Route: 048
     Dates: start: 2003
  3. ABILIFY [Suspect]
     Indication: BIPOLAR DISORDER
     Dosage: 1-5MG TABLE EVERYDAY?90 (2REFILLS)?1TAB. EVERY DAY?BY MOUTH
     Route: 048
     Dates: start: 2003
  4. ABILIFY [Suspect]
     Indication: SCHIZOPHRENIA
     Dosage: 1-5MG TABLE EVERYDAY?90 (2REFILLS)?1TAB. EVERY DAY?BY MOUTH
     Route: 048
     Dates: start: 2003

REACTIONS (20)
  - Glucose tolerance impaired [None]
  - Sciatica [None]
  - Dyspnoea [None]
  - Insomnia [None]
  - Tardive dyskinesia [None]
  - Obesity [None]
  - Hyperhidrosis [None]
  - Thirst [None]
  - Pollakiuria [None]
  - Hunger [None]
  - Dysphagia [None]
  - Dizziness [None]
  - Akathisia [None]
  - Muscle disorder [None]
  - Restlessness [None]
  - Fatigue [None]
  - Increased appetite [None]
  - Tremor [None]
  - Hypoglycaemia [None]
  - Unevaluable event [None]
